FAERS Safety Report 25525140 (Version 1)
Quarter: 2025Q3

REPORT INFORMATION
  Report Type: Spontaneous
  Country: US (occurrence: None)
  Receive Date: 20250703
  Receipt Date: 20250703
  Transmission Date: 20251020
  Serious: No
  Sender: FDA-CTU
  Company Number: None

PATIENT
  Sex: Female

DRUGS (2)
  1. LENALIDOMIDE [Suspect]
     Active Substance: LENALIDOMIDE
     Indication: Plasma cell myeloma
     Route: 048
     Dates: start: 20250627, end: 20250630
  2. NINLARO [Suspect]
     Active Substance: IXAZOMIB CITRATE

REACTIONS (4)
  - Pharyngeal paraesthesia [None]
  - Paraesthesia [None]
  - Pruritus [None]
  - Rash pruritic [None]
